FAERS Safety Report 7460907-8 (Version None)
Quarter: 2011Q2

REPORT INFORMATION
  Report Type: 
  Country: None (occurrence: None)
  Receive Date: 20110505
  Receipt Date: 20110420
  Transmission Date: 20111010
  Serious: Yes (Hospitalization)
  Sender: FDA-Public Use
  Company Number: FR-GENENTECH-282547

PATIENT
  Sex: Female

DRUGS (23)
  1. FLUDARA [Suspect]
     Indication: CHRONIC LYMPHOCYTIC LEUKAEMIA
     Dosage: 60 MG, QD
     Route: 002
     Dates: start: 20080715, end: 20080717
  2. ENDOXAN [Suspect]
     Indication: NEOPLASM MALIGNANT
     Dosage: 400 MG, QD
     Route: 002
     Dates: start: 20080715, end: 20080717
  3. PLAVIX [Concomitant]
     Indication: HYPERTENSION
  4. ALPRAZOLAM [Concomitant]
     Indication: ANXIETY
  5. FENOFIBRATE [Concomitant]
     Indication: PRODUCT USED FOR UNKNOWN INDICATION
  6. NEXIUM [Concomitant]
     Indication: PRODUCT USED FOR UNKNOWN INDICATION
     Dosage: 40 MG, QD
     Dates: start: 20080902
  7. CACIT [Concomitant]
     Indication: PRODUCT USED FOR UNKNOWN INDICATION
  8. BRONCHODUAL [Concomitant]
     Indication: PRODUCT USED FOR UNKNOWN INDICATION
  9. BECLOSPIN [Concomitant]
     Indication: PRODUCT USED FOR UNKNOWN INDICATION
  10. DIFFU-K [Concomitant]
     Indication: PRODUCT USED FOR UNKNOWN INDICATION
  11. PREDNISOLONE [Concomitant]
     Indication: PRODUCT USED FOR UNKNOWN INDICATION
  12. DURAGESIC-100 [Concomitant]
     Indication: PRODUCT USED FOR UNKNOWN INDICATION
  13. PARACETAMOL [Concomitant]
     Indication: PRODUCT USED FOR UNKNOWN INDICATION
  14. CONCOMITANT DRUG [Concomitant]
     Indication: PRODUCT USED FOR UNKNOWN INDICATION
  15. SERETIDE [Concomitant]
     Indication: PRODUCT USED FOR UNKNOWN INDICATION
  16. AMLODIPINE BESYLATE [Concomitant]
     Indication: PRODUCT USED FOR UNKNOWN INDICATION
  17. TEGELINE [Concomitant]
     Indication: HYPOGAMMAGLOBULINAEMIA
     Dosage: UNK
     Dates: start: 20090107
  18. RITUXIMAB [Suspect]
     Indication: CHRONIC LYMPHOCYTIC LEUKAEMIA
     Dosage: 800 MG, QD
     Route: 042
     Dates: start: 20080715, end: 20080715
  19. ACETAMINOPHEN AND TRAMADOL HCL [Concomitant]
     Indication: PRODUCT USED FOR UNKNOWN INDICATION
  20. ZELITREX [Concomitant]
     Indication: PRODUCT USED FOR UNKNOWN INDICATION
  21. TRANSIPEG (BELGIUM) [Concomitant]
     Indication: PRODUCT USED FOR UNKNOWN INDICATION
  22. TAREG [Concomitant]
     Indication: HYPERTENSION
  23. PROPRANOLOL [Concomitant]
     Indication: PRODUCT USED FOR UNKNOWN INDICATION
     Dosage: 40 MG, QD
     Dates: start: 20080819

REACTIONS (7)
  - PNEUMOCYSTIS JIROVECI INFECTION [None]
  - ACUTE RESPIRATORY DISTRESS SYNDROME [None]
  - BRONCHOPNEUMOPATHY [None]
  - ASTHMA [None]
  - BACTERAEMIA [None]
  - LUNG INFECTION [None]
  - BRONCHOPULMONARY ASPERGILLOSIS [None]
